FAERS Safety Report 13735392 (Version 1)
Quarter: 2017Q3

REPORT INFORMATION
  Report Type: Spontaneous
  Country: US (occurrence: US)
  Receive Date: 20170709
  Receipt Date: 20170709
  Transmission Date: 20171127
  Serious: Yes (Death, Hospitalization)
  Sender: FDA-Public Use
  Company Number: None

PATIENT
  Age: 41 Year
  Sex: Female
  Weight: 80 kg

DRUGS (2)
  1. MICAFUNGIN [Suspect]
     Active Substance: MICAFUNGIN
     Indication: LUNG INFECTION
     Dosage: ?          OTHER DOSE:MG;?
     Route: 040
     Dates: start: 20170621, end: 20170623
  2. MICAFUNGIN [Suspect]
     Active Substance: MICAFUNGIN
     Indication: FUNGAL INFECTION
     Dosage: ?          OTHER DOSE:MG;?
     Route: 040
     Dates: start: 20170621, end: 20170623

REACTIONS (12)
  - Acidosis [None]
  - Dyspnoea [None]
  - Renal impairment [None]
  - Clostridium difficile colitis [None]
  - Ischaemic hepatitis [None]
  - Hepatic failure [None]
  - Coagulopathy [None]
  - Hepatocellular injury [None]
  - Pyrexia [None]
  - Fluid overload [None]
  - Hepatomegaly [None]
  - Lymphadenopathy [None]

NARRATIVE: CASE EVENT DATE: 20170621
